FAERS Safety Report 10718731 (Version 2)
Quarter: 2015Q1

REPORT INFORMATION
  Report Type: Spontaneous
  Country: US (occurrence: US)
  Receive Date: 20150119
  Receipt Date: 20150119
  Transmission Date: 20150721
  Serious: No
  Sender: FDA-Public Use
  Company Number: US-UNITED THERAPEUTICS-UNT-2014-001695

PATIENT
  Age: 49 Year
  Sex: Female
  Weight: 54.42 kg

DRUGS (3)
  1. TRACLEER [Concomitant]
     Active Substance: BOSENTAN\BOSENTAN MONOHYDRATE
     Indication: PRODUCT USED FOR UNKNOWN INDICATION
  2. REMODULIN [Suspect]
     Active Substance: TREPROSTINIL
     Indication: PULMONARY HYPERTENSION
     Dosage: 0.101 ?G/KG/MIN, CONTINUING
     Route: 058
     Dates: start: 20131220
  3. REMODULIN [Suspect]
     Active Substance: TREPROSTINIL
     Dosage: 0.101 ?G/KG/MIN, CONTINUING
     Route: 058
     Dates: start: 20040504

REACTIONS (5)
  - Migraine [Unknown]
  - Dyspnoea [Unknown]
  - Device dislocation [Unknown]
  - Infusion site pain [Unknown]
  - Headache [Unknown]

NARRATIVE: CASE EVENT DATE: 201406
